FAERS Safety Report 6611212-0 (Version None)
Quarter: 2010Q1

REPORT INFORMATION
  Report Type: 
  Country: None (occurrence: None)
  Receive Date: 20100226
  Receipt Date: 20100226
  Transmission Date: 20100710
  Serious: No
  Sender: FDA-Public Use
  Company Number: None

PATIENT
  Age: 23 Year
  Sex: Female
  Weight: 84.8226 kg

DRUGS (5)
  1. LAMOTRIGINE [Suspect]
     Dosage: 300MG PO DAILY
     Route: 048
     Dates: start: 20081210
  2. MINOCYCLINE HCL [Concomitant]
  3. CITALOPRAM [Concomitant]
  4. OMEPRAZOLE [Concomitant]
  5. ZIPRASIDONE HCL [Concomitant]

REACTIONS (1)
  - RASH [None]
